FAERS Safety Report 10507257 (Version 3)
Quarter: 2014Q4

REPORT INFORMATION
  Report Type: Spontaneous
  Country: US (occurrence: US)
  Receive Date: 20141009
  Receipt Date: 20141127
  Transmission Date: 20150528
  Serious: Yes (Hospitalization, Other)
  Sender: FDA-Public Use
  Company Number: US-SA-2014SA137712

PATIENT
  Age: 52 Year
  Sex: Male

DRUGS (7)
  1. PREDNISONE. [Concomitant]
     Active Substance: PREDNISONE
  2. MEGLUMINE AMIDOTRIZOATE [Concomitant]
  3. METOPROLOL [Concomitant]
     Active Substance: METOPROLOL
  4. RAMIPRIL. [Concomitant]
     Active Substance: RAMIPRIL
  5. LIPITOR [Concomitant]
     Active Substance: ATORVASTATIN CALCIUM
  6. FABRAZYME [Suspect]
     Active Substance: AGALSIDASE BETA
     Indication: FABRY^S DISEASE
     Route: 041
     Dates: start: 20041201
  7. FABRAZYME [Suspect]
     Active Substance: AGALSIDASE BETA
     Indication: FABRY^S DISEASE
     Route: 041
     Dates: start: 201409, end: 20140918

REACTIONS (5)
  - Haemoptysis [Unknown]
  - Vomiting [Not Recovered/Not Resolved]
  - Tachycardia [Not Recovered/Not Resolved]
  - Peripheral swelling [Unknown]
  - Oedema [Unknown]

NARRATIVE: CASE EVENT DATE: 2014
